FAERS Safety Report 4520992-X (Version None)
Quarter: 2004Q4

REPORT INFORMATION
  Report Type: 
  Country: None (occurrence: None)
  Receive Date: 20041206
  Receipt Date: 20041122
  Transmission Date: 20050328
  Serious: Yes (Hospitalization, Other)
  Sender: FDA-Public Use
  Company Number: 2004086750

PATIENT
  Age: 31 Year
  Sex: Female
  Weight: 60 kg

DRUGS (2)
  1. ZIPRASIDONE [Suspect]
     Indication: SCHIZOPHRENIA
     Dosage: 80 MG (1 IN 1 D), ORAL
     Route: 048
     Dates: start: 20040501, end: 20041029
  2. CLOZAPINE [Suspect]
     Indication: ILL-DEFINED DISORDER

REACTIONS (3)
  - ACUTE MYELOID LEUKAEMIA [None]
  - ANAEMIA [None]
  - LEUKOPENIA [None]
